FAERS Safety Report 15191370 (Version 2)
Quarter: 2018Q3

REPORT INFORMATION
  Report Type: Spontaneous
  Country: CO (occurrence: CO)
  Receive Date: 20180724
  Receipt Date: 20180814
  Transmission Date: 20181010
  Serious: Yes (Other)
  Sender: FDA-Public Use
  Company Number: CO-JNJFOC-20180728031

PATIENT
  Age: 75 Year
  Sex: Female

DRUGS (13)
  1. SPIRONOLACTONE. [Concomitant]
     Active Substance: SPIRONOLACTONE
     Route: 065
  2. FUROSEMIDE. [Concomitant]
     Active Substance: FUROSEMIDE
     Indication: INFLAMMATION
     Route: 065
  3. XARELTO [Suspect]
     Active Substance: RIVAROXABAN
     Indication: PULMONARY EMBOLISM
     Route: 048
     Dates: start: 20180323
  4. LEVOTHYROXINE. [Concomitant]
     Active Substance: LEVOTHYROXINE
     Indication: HYPOTHYROIDISM
     Route: 065
  5. FUROSEMIDE. [Concomitant]
     Active Substance: FUROSEMIDE
     Indication: FLUID RETENTION
     Route: 065
  6. LOSARTAN. [Concomitant]
     Active Substance: LOSARTAN
     Indication: HYPERTENSION
     Route: 065
  7. FUROSEMIDE. [Concomitant]
     Active Substance: FUROSEMIDE
     Indication: EYELID OEDEMA
     Route: 065
  8. FUROSEMIDE. [Concomitant]
     Active Substance: FUROSEMIDE
     Indication: EYELID OEDEMA
     Route: 065
  9. METFORMIN [Concomitant]
     Active Substance: METFORMIN HYDROCHLORIDE
     Route: 065
  10. FUROSEMIDE. [Concomitant]
     Active Substance: FUROSEMIDE
     Indication: INFLAMMATION
     Route: 065
  11. ADEMPAS [Suspect]
     Active Substance: RIOCIGUAT
     Indication: PULMONARY HYPERTENSION
     Route: 048
     Dates: start: 20180302
  12. FUROSEMIDE. [Concomitant]
     Active Substance: FUROSEMIDE
     Indication: FLUID RETENTION
     Route: 065
  13. WARFARIN [Concomitant]
     Active Substance: WARFARIN
     Route: 065

REACTIONS (12)
  - Dyspnoea [Not Recovered/Not Resolved]
  - Inflammation [Not Recovered/Not Resolved]
  - Asphyxia [Not Recovered/Not Resolved]
  - Fatigue [Not Recovered/Not Resolved]
  - Epistaxis [Recovered/Resolved]
  - Dermatitis [Recovered/Resolved]
  - Fatigue [Unknown]
  - Diarrhoea [Not Recovered/Not Resolved]
  - Eyelid oedema [Recovered/Resolved]
  - Cough [Recovered/Resolved]
  - Dizziness [Not Recovered/Not Resolved]
  - Fluid retention [Recovered/Resolved]

NARRATIVE: CASE EVENT DATE: 201807
